FAERS Safety Report 9003576 (Version 4)
Quarter: 2013Q3

REPORT INFORMATION
  Report Type: Spontaneous
  Country: US (occurrence: US)
  Receive Date: 20130108
  Receipt Date: 20130829
  Transmission Date: 20140515
  Serious: Yes (Hospitalization, Disabling, Other)
  Sender: FDA-Public Use
  Company Number: US-009507513-1301USA000962

PATIENT
  Sex: Female
  Weight: 68.93 kg

DRUGS (7)
  1. FOSAMAX [Suspect]
     Indication: OSTEOPOROSIS
     Dosage: 10 MG, UNK
     Route: 048
     Dates: start: 200105, end: 201005
  2. FOSAMAX [Suspect]
     Dosage: 70 MG, UNK
     Route: 048
     Dates: start: 200105, end: 201005
  3. DILANTIN [Concomitant]
     Indication: CONVULSION
     Dosage: 300 MG, QD
     Dates: start: 1979
  4. FORTEO [Concomitant]
     Indication: OSTEOPOROSIS
     Dosage: 20 MICROGRAM, QD
     Dates: start: 201111, end: 201206
  5. CALCIUM (UNSPECIFIED) [Concomitant]
     Indication: OSTEOPOROSIS
     Dosage: 600 MG, BID
     Dates: start: 1998
  6. VITAMIN D (UNSPECIFIED) [Concomitant]
     Indication: OSTEOPOROSIS
     Dosage: 2000 IU, QD
     Dates: start: 1998
  7. VITAMINS (UNSPECIFIED) [Concomitant]
     Dosage: 1 DF, QD
     Dates: start: 1990

REACTIONS (68)
  - Femur fracture [Recovering/Resolving]
  - Open reduction of fracture [Unknown]
  - Femur fracture [Unknown]
  - Open reduction of fracture [Unknown]
  - Haemoglobin decreased [Unknown]
  - Confusional state [Recovered/Resolved]
  - Femur fracture [Unknown]
  - Knee arthroplasty [Unknown]
  - Knee arthroplasty [Unknown]
  - Deep vein thrombosis [Unknown]
  - Anaemia postoperative [Unknown]
  - Osteoporosis [Unknown]
  - Stress fracture [Unknown]
  - Cerebrovascular accident [Unknown]
  - Spinal laminectomy [Unknown]
  - Surgery [Unknown]
  - Surgery [Unknown]
  - Adverse event [Unknown]
  - Adverse event [Unknown]
  - Low turnover osteopathy [Unknown]
  - Fall [Unknown]
  - Craniocerebral injury [Unknown]
  - Convulsion [Unknown]
  - Pyrexia [Recovered/Resolved]
  - Tonsillectomy [Unknown]
  - Clavicle fracture [Recovered/Resolved]
  - Soft tissue injury [Unknown]
  - Calcinosis [Unknown]
  - Thyroid neoplasm [Unknown]
  - Fall [Unknown]
  - Rotator cuff syndrome [Unknown]
  - Bursitis [Unknown]
  - Ataxia [Unknown]
  - Dementia [Unknown]
  - Urinary incontinence [Unknown]
  - Normal pressure hydrocephalus [Unknown]
  - Subdural haemorrhage [Unknown]
  - Subdural haemorrhage [Unknown]
  - White matter lesion [Not Recovered/Not Resolved]
  - Intervertebral disc degeneration [Unknown]
  - Vertebral osteophyte [Unknown]
  - Intervertebral disc protrusion [Unknown]
  - Cardiac valve disease [Unknown]
  - Cardiac aneurysm [Unknown]
  - Dilatation ventricular [Unknown]
  - Dilatation ventricular [Unknown]
  - Osteoarthritis [Unknown]
  - Adenoidectomy [Unknown]
  - Arthroscopic surgery [Unknown]
  - Arthroscopic surgery [Unknown]
  - Cataract operation [Unknown]
  - Intraocular lens implant [Unknown]
  - Hyperlipidaemia [Unknown]
  - Gastrointestinal haemorrhage [Unknown]
  - Peptic ulcer [Unknown]
  - Depression [Unknown]
  - Urge incontinence [Unknown]
  - Chronic obstructive pulmonary disease [Not Recovered/Not Resolved]
  - Cellulitis [Unknown]
  - Facial bones fracture [Unknown]
  - Pain [Unknown]
  - Facial bones fracture [Unknown]
  - Infection [Unknown]
  - Cataract [Unknown]
  - Bundle branch block left [Unknown]
  - Vitamin D deficiency [Unknown]
  - Gastritis [Unknown]
  - Abdominal pain upper [Unknown]
